FAERS Safety Report 18648733 (Version 1)
Quarter: 2020Q4

REPORT INFORMATION
  Report Type: Spontaneous
  Country: US (occurrence: US)
  Receive Date: 20201222
  Receipt Date: 20201222
  Transmission Date: 20210114
  Serious: No
  Sender: FDA-Public Use
  Company Number: US-RECORDATI RARE DISEASES-2103304

PATIENT
  Sex: Female

DRUGS (2)
  1. ISTURISA [Suspect]
     Active Substance: OSILODROSTAT PHOSPHATE
  2. ISTURISA [Suspect]
     Active Substance: OSILODROSTAT PHOSPHATE
     Indication: PRODUCT USED FOR UNKNOWN INDICATION

REACTIONS (3)
  - Wheezing [Unknown]
  - Swelling [Unknown]
  - Rash [Unknown]
